FAERS Safety Report 9625732 (Version 1)
Quarter: 2013Q4

REPORT INFORMATION
  Report Type: Spontaneous
  Country: AR (occurrence: AR)
  Receive Date: 20131016
  Receipt Date: 20131016
  Transmission Date: 20140711
  Serious: Yes (Other)
  Sender: FDA-Public Use
  Company Number: AR-AMGEN-ARGSP2013072754

PATIENT
  Age: 58 Year
  Sex: Female

DRUGS (2)
  1. ENBREL [Suspect]
     Indication: RHEUMATOID ARTHRITIS
     Dosage: 50 MG, WEEKLY
     Route: 065
     Dates: start: 20060606
  2. METHOTREXATE [Concomitant]
     Dosage: 10 MG, WEEKLY
     Route: 065
     Dates: start: 200606

REACTIONS (11)
  - Femur fracture [Unknown]
  - Toe amputation [Unknown]
  - Bunion [Unknown]
  - Bone deformity [Unknown]
  - Foot deformity [Unknown]
  - Malaise [Unknown]
  - Pain in extremity [Unknown]
  - Dysphonia [Not Recovered/Not Resolved]
  - Oropharyngeal pain [Not Recovered/Not Resolved]
  - Osteomyelitis [Recovered/Resolved]
  - Injection site urticaria [Recovered/Resolved]
